FAERS Safety Report 7101845-X (Version None)
Quarter: 2010Q4

REPORT INFORMATION
  Report Type: 
  Country: None (occurrence: None)
  Receive Date: 20101115
  Receipt Date: 20101108
  Transmission Date: 20110411
  Serious: Yes (Other)
  Sender: FDA-Public Use
  Company Number: ZA-PFIZER INC-2010142138

PATIENT
  Age: 54 Year
  Sex: Male

DRUGS (2)
  1. LIPITOR [Suspect]
     Indication: HYPERCHOLESTEROLAEMIA
     Dosage: 5 MG, UNK
     Route: 048
     Dates: start: 20100101, end: 20100101
  2. AMLOC [Concomitant]
     Indication: HYPERTENSION
     Route: 048

REACTIONS (8)
  - AMNESIA [None]
  - BLOOD GLUCOSE INCREASED [None]
  - BURNING FEET SYNDROME [None]
  - DEPRESSION [None]
  - DIZZINESS [None]
  - MYALGIA [None]
  - NEUROPATHY PERIPHERAL [None]
  - VISUAL IMPAIRMENT [None]
